FAERS Safety Report 6884188-9 (Version None)
Quarter: 2010Q3

REPORT INFORMATION
  Report Type: 
  Country: None (occurrence: None)
  Receive Date: 20100729
  Receipt Date: 20100716
  Transmission Date: 20110219
  Serious: Yes (Death, Hospitalization)
  Sender: FDA-Public Use
  Company Number: DE-GENENTECH-304434

PATIENT
  Sex: Male
  Weight: 82 kg

DRUGS (2)
  1. RITUXIMAB [Suspect]
     Indication: LYMPHOPLASMACYTOID LYMPHOMA/IMMUNOCYTOMA
     Dosage: 750 MG, UNK
     Route: 042
     Dates: start: 20100111
  2. BENDAMUSTINE [Concomitant]
     Indication: LYMPHOPLASMACYTOID LYMPHOMA/IMMUNOCYTOMA
     Dosage: 180 MG, UNK
     Route: 042
     Dates: start: 20100112

REACTIONS (3)
  - ACUTE HEPATIC FAILURE [None]
  - HEPATITIS B [None]
  - RENAL FAILURE [None]
